FAERS Safety Report 16469482 (Version 1)
Quarter: 2019Q2

REPORT INFORMATION
  Report Type: Spontaneous
  Country: US (occurrence: US)
  Receive Date: 20190514
  Receipt Date: 20190514
  Transmission Date: 20190711
  Serious: No
  Sender: FDA-Public Use
  Company Number: None

PATIENT
  Age: 33 Year
  Sex: Male

DRUGS (1)
  1. COSENTYX [Suspect]
     Active Substance: SECUKINUMAB
     Dates: start: 201809, end: 201904

REACTIONS (4)
  - Bruxism [None]
  - Night sweats [None]
  - Muscle tightness [None]
  - Insomnia [None]

NARRATIVE: CASE EVENT DATE: 20190514
